FAERS Safety Report 16768519 (Version 1)
Quarter: 2019Q3

REPORT INFORMATION
  Report Type: Spontaneous
  Country: IN (occurrence: IN)
  Receive Date: 20190903
  Receipt Date: 20190903
  Transmission Date: 20191005
  Serious: Yes (Death)
  Sender: FDA-Public Use
  Company Number: PHHY2019IN202941

PATIENT
  Sex: Male

DRUGS (1)
  1. REVOLADE [Suspect]
     Active Substance: ELTROMBOPAG
     Indication: NON-SMALL CELL LUNG CANCER
     Dosage: 450 MG, QD
     Route: 048
     Dates: start: 20180724

REACTIONS (4)
  - Product use in unapproved indication [Unknown]
  - Blood creatinine increased [Unknown]
  - Septic shock [Fatal]
  - Vomiting [Unknown]

NARRATIVE: CASE EVENT DATE: 20190819
